FAERS Safety Report 7065543-3 (Version None)
Quarter: 2010Q4

REPORT INFORMATION
  Report Type: 
  Country: None (occurrence: None)
  Receive Date: 20101027
  Receipt Date: 20101014
  Transmission Date: 20110411
  Serious: Yes (Hospitalization)
  Sender: FDA-Public Use
  Company Number: DZ-ROCHE-734772

PATIENT
  Age: 54 Year
  Sex: Female

DRUGS (3)
  1. PEGASYS [Suspect]
     Indication: HEPATITIS C
     Route: 065
     Dates: start: 20100101, end: 20100101
  2. COPEGUS [Suspect]
     Indication: HEPATITIS C
     Route: 065
     Dates: start: 20100101, end: 20100101
  3. INSULIN [Concomitant]
     Dosage: DRUG NAME REPORTED AS UNSPECIFIED INSULIN TREATMENT.

REACTIONS (4)
  - CHEST PAIN [None]
  - HYPOTENSION [None]
  - MYOCARDIAL ISCHAEMIA [None]
  - VERTIGO [None]
